FAERS Safety Report 25681061 (Version 1)
Quarter: 2025Q3

REPORT INFORMATION
  Report Type: Spontaneous
  Country: US (occurrence: US)
  Receive Date: 20250814
  Receipt Date: 20250814
  Transmission Date: 20251021
  Serious: No
  Sender: PFIZER
  Company Number: US-PFIZER INC-202500162934

PATIENT

DRUGS (2)
  1. LIDOCAINE HYDROCHLORIDE [Suspect]
     Active Substance: LIDOCAINE HYDROCHLORIDE
  2. GABAPENTIN [Suspect]
     Active Substance: GABAPENTIN

REACTIONS (1)
  - Therapeutic product effect incomplete [Unknown]
